FAERS Safety Report 5055991-5 (Version None)
Quarter: 2006Q3

REPORT INFORMATION
  Report Type: 
  Country: None (occurrence: None)
  Receive Date: 20060720
  Receipt Date: 20060711
  Transmission Date: 20061208
  Serious: Yes (Death)
  Sender: FDA-Public Use
  Company Number: FR-SOLVAY-00206002250

PATIENT
  Age: 78 Year
  Sex: Male

DRUGS (10)
  1. COVERSYL [Suspect]
     Indication: ILL-DEFINED DISORDER
     Dosage: DAILY DOSE: 1 DOSAGE FORM
     Route: 048
     Dates: end: 20060301
  2. COVERSYL [Interacting]
     Dosage: DAILY DOSE: 1 DOSAGE FORM
     Route: 048
     Dates: start: 20060301, end: 20060616
  3. ADANCOR [Concomitant]
     Indication: ILL-DEFINED DISORDER
     Dosage: DAILY DOSE:  UNKNOWN
     Route: 065
     Dates: end: 20060616
  4. ALDACTONE [Interacting]
     Indication: ILL-DEFINED DISORDER
     Dosage: DAILY DOSE: 25 MILLIGRAM(S)
     Route: 048
     Dates: end: 20060301
  5. ALDACTONE [Interacting]
     Dosage: DAILY DOSE: 25 MILLIGRAM(S)
     Route: 048
     Dates: start: 20060427, end: 20060616
  6. TAHOR [Concomitant]
     Indication: ILL-DEFINED DISORDER
     Dosage: DAILY DOSE:  UNKNOWN
     Route: 065
     Dates: end: 20060616
  7. LASILIX [Interacting]
     Indication: ILL-DEFINED DISORDER
     Dosage: DAILY DOSE: 80 MILLIGRAM(S)
     Route: 048
     Dates: end: 20060301
  8. LASILIX [Interacting]
     Dosage: DAILY DOSE: 80 MILLIGRAM(S)
     Route: 048
     Dates: start: 20060301, end: 20060616
  9. DISCOTRINE [Concomitant]
     Indication: ILL-DEFINED DISORDER
     Dosage: DAILY DOSE:  UNKNOWN
     Route: 065
  10. ALLOPURINOL [Concomitant]
     Indication: ILL-DEFINED DISORDER
     Dosage: DAILY DOSE:  UNKNOWN
     Route: 048
     Dates: end: 20060616

REACTIONS (13)
  - CARDIAC ARREST [None]
  - CIRCULATORY COLLAPSE [None]
  - DRUG INTERACTION [None]
  - EJECTION FRACTION DECREASED [None]
  - GENERAL PHYSICAL HEALTH DETERIORATION [None]
  - HAEMODIALYSIS [None]
  - HYPERKALAEMIA [None]
  - LOSS OF CONSCIOUSNESS [None]
  - LUNG DISORDER [None]
  - MYDRIASIS [None]
  - RENAL FAILURE ACUTE [None]
  - SHOCK [None]
  - VENTRICULAR TACHYCARDIA [None]
